FAERS Safety Report 12434705 (Version 1)
Quarter: 2016Q2

REPORT INFORMATION
  Report Type: Spontaneous
  Country: NL (occurrence: NL)
  Receive Date: 20160603
  Receipt Date: 20160603
  Transmission Date: 20160815
  Serious: Yes (Other)
  Sender: FDA-Public Use
  Company Number: NL-ELI_LILLY_AND_COMPANY-NL201606000719

PATIENT
  Sex: Female

DRUGS (1)
  1. ZYPREXA [Suspect]
     Active Substance: OLANZAPINE
     Indication: PRODUCT USED FOR UNKNOWN INDICATION
     Dosage: UNK, UNKNOWN
     Route: 065

REACTIONS (12)
  - Contusion [Unknown]
  - Muscular weakness [Unknown]
  - Contusion [Not Recovered/Not Resolved]
  - Nerve root compression [Recovered/Resolved]
  - Osteoarthritis [Not Recovered/Not Resolved]
  - Cervical spinal stenosis [Unknown]
  - Fall [Unknown]
  - Spinal fracture [Unknown]
  - Spinal osteoarthritis [Not Recovered/Not Resolved]
  - Gait disturbance [Unknown]
  - Monoparesis [Unknown]
  - Osteoporosis [Unknown]

NARRATIVE: CASE EVENT DATE: 201303
